FAERS Safety Report 22301688 (Version 1)
Quarter: 2023Q2

REPORT INFORMATION
  Report Type: Other
  Country: None (occurrence: CN)
  Receive Date: 20230510
  Receipt Date: 20230510
  Transmission Date: 20230721
  Serious: Yes (Other)
  Sender: FDA-Public Use
  Company Number: CN-Jiangsu Hengrui Medicine Co., Ltd.-2141312

PATIENT
  Age: 65 Year
  Sex: Female
  Weight: 53 kg

DRUGS (1)
  1. DOCETAXEL [Suspect]
     Active Substance: DOCETAXEL
     Indication: Breast cancer
     Route: 041
     Dates: start: 20230314, end: 20230314

REACTIONS (5)
  - Headache [Recovering/Resolving]
  - Dizziness [Recovering/Resolving]
  - Palpitations [Recovering/Resolving]
  - Chest discomfort [Recovering/Resolving]
  - Tachycardia [Recovering/Resolving]

NARRATIVE: CASE EVENT DATE: 20230314
